FAERS Safety Report 6296131-4 (Version None)
Quarter: 2009Q3

REPORT INFORMATION
  Report Type: 
  Country: None (occurrence: None)
  Receive Date: 20090731
  Receipt Date: 20090720
  Transmission Date: 20100115
  Serious: Yes (Hospitalization)
  Sender: FDA-Public Use
  Company Number: GXKR2009NL08433

PATIENT
  Age: 86 Year
  Sex: Male

DRUGS (9)
  1. BUMETANIDE        TABLET, 5MG [Suspect]
     Indication: PULMONARY HYPERTENSION
     Dosage: 5 MG, QD, ORAL
     Route: 048
     Dates: start: 20070101
  2. BUMETANIDE        TABLET, 5MG [Suspect]
     Indication: RIGHT VENTRICULAR FAILURE
     Dosage: 5 MG, QD, ORAL
     Route: 048
     Dates: start: 20070101
  3. DICLOFENAC          (DICLOFENAC) 75MG [Suspect]
     Indication: PAIN
     Dosage: 75 MG, QD, ORAL
     Route: 048
     Dates: start: 20090401, end: 20090626
  4. VERAPAMIL [Concomitant]
  5. ACENOCOUMAROL (ACENOCOUMAROL) [Concomitant]
  6. BETAHISTINE (BETAHISTINE) [Concomitant]
  7. COLCHICINE (COLCHICINE) [Concomitant]
  8. COZAAR [Suspect]
     Indication: PULMONARY HYPERTENSION
     Dosage: 50MG   QD, PO
     Route: 048
     Dates: end: 20070101
  9. COZAAR [Suspect]
     Indication: RIGHT VENTRICULAR FAILURE
     Dosage: 50MG   QD, PO
     Route: 048
     Dates: end: 20070101

REACTIONS (4)
  - HYPERPARATHYROIDISM SECONDARY [None]
  - HYPOKALAEMIA [None]
  - PEPTIC ULCER [None]
  - RENAL FAILURE ACUTE [None]
